FAERS Safety Report 17895173 (Version 1)
Quarter: 2020Q2

REPORT INFORMATION
  Report Type: Spontaneous
  Country: KR (occurrence: KR)
  Receive Date: 20200615
  Receipt Date: 20200615
  Transmission Date: 20200714
  Serious: Yes (Hospitalization, Other)
  Sender: FDA-Public Use
  Company Number: KR-RISING PHARMA HOLDINGS, INC.-2020RIS000024

PATIENT
  Age: 26 Year
  Sex: Male

DRUGS (1)
  1. DUTASTERIDE. [Suspect]
     Active Substance: DUTASTERIDE
     Indication: ALOPECIA
     Dosage: 0.5 MILLIGRAM, EVERY OTHER DAY FOR 9 MONTHS
     Route: 065

REACTIONS (2)
  - Cerebral venous sinus thrombosis [Recovered/Resolved]
  - Product use in unapproved indication [Unknown]
